FAERS Safety Report 10138456 (Version 1)
Quarter: 2014Q2

REPORT INFORMATION
  Report Type: Report from Study
  Country: JP (occurrence: JP)
  Receive Date: 20140429
  Receipt Date: 20140429
  Transmission Date: 20141212
  Serious: Yes (Life-Threatening, Hospitalization, Disabling)
  Sender: FDA-Public Use
  Company Number: JP-SA-2014SA054514

PATIENT
  Age: 20 Year
  Sex: Male
  Weight: 71.6 kg

DRUGS (12)
  1. THYMOGLOBULINE [Suspect]
     Indication: APLASTIC ANAEMIA
     Route: 042
     Dates: start: 20130828, end: 20130901
  2. NEORAL [Concomitant]
     Indication: APLASTIC ANAEMIA
     Dates: start: 20130828
  3. POLARAMINE [Concomitant]
     Indication: PROPHYLAXIS
     Dates: start: 20130828, end: 20130901
  4. CALONAL [Concomitant]
     Indication: PROPHYLAXIS
     Dates: start: 20130828, end: 20130901
  5. POLYMYXIN B SULFATE [Concomitant]
     Indication: PROPHYLAXIS
     Dates: start: 20130828, end: 20131030
  6. ITRACONAZOLE [Concomitant]
     Indication: PROPHYLAXIS
     Dates: start: 20130828, end: 20131030
  7. VALTREX [Concomitant]
     Indication: ANTIVIRAL PROPHYLAXIS
     Dates: start: 20130828, end: 20131130
  8. FAMOTIDINE [Concomitant]
     Indication: PROPHYLAXIS AGAINST GASTROINTESTINAL ULCER
     Dates: start: 20130828, end: 20131130
  9. MAGLAX [Concomitant]
     Indication: CONSTIPATION PROPHYLAXIS
     Dates: start: 20130828, end: 20131130
  10. PREDONINE [Concomitant]
     Indication: PROPHYLAXIS
     Dates: start: 20130902, end: 20131015
  11. SAXIZON [Concomitant]
     Indication: PROPHYLAXIS
     Dates: start: 20130828, end: 20130913
  12. SOL-MELCORT [Concomitant]
     Indication: PROPHYLAXIS
     Dates: start: 20130829, end: 20130901

REACTIONS (6)
  - Febrile neutropenia [Recovered/Resolved]
  - Abscess limb [Recovering/Resolving]
  - Febrile neutropenia [Not Recovered/Not Resolved]
  - White blood cell count decreased [Recovered/Resolved]
  - Staphylococcal sepsis [Recovered/Resolved]
  - Platelet count decreased [Not Recovered/Not Resolved]
